FAERS Safety Report 13727830 (Version 3)
Quarter: 2017Q3

REPORT INFORMATION
  Report Type: Spontaneous
  Country: US (occurrence: US)
  Receive Date: 20170707
  Receipt Date: 20170726
  Transmission Date: 20171127
  Serious: Yes (Death)
  Sender: FDA-Public Use
  Company Number: US-ROCHE-1959847

PATIENT
  Sex: Female
  Weight: 52.21 kg

DRUGS (8)
  1. TIMOPTIC EYE DROPS [Concomitant]
     Dosage: MORNING
     Route: 065
  2. AMLODIPINE [Concomitant]
     Active Substance: AMLODIPINE BESYLATE
     Dosage: INCREASED 5/20 BY NEPH. INCREASED TO 10 MG 6/7?MORNING
     Route: 065
  3. CLARITAN (UNK INGREDIENTS) [Concomitant]
     Dosage: 1 TAB
     Route: 065
  4. SINGULAIR [Concomitant]
     Active Substance: MONTELUKAST SODIUM
     Dosage: EVENING
     Route: 065
  5. FERROUS GLUCONATE [Concomitant]
     Active Substance: FERROUS GLUCONATE
     Dosage: AFTERNOON
     Route: 065
  6. RITUXAN [Suspect]
     Active Substance: RITUXIMAB
     Indication: ACUTE KIDNEY INJURY
     Dosage: PATIENT RECEIVED A TOTAL OF 4 DOSES?RECEIVED DATE 09/JUN/2017, 14/JUN/2017, 21/JUN/2017, 28/JUN/2017
     Route: 042
     Dates: start: 20170609, end: 20170628
  7. VITAMIN D3 [Concomitant]
     Active Substance: CHOLECALCIFEROL
     Dosage: MORNING
     Route: 065
  8. PREDNISONE. [Concomitant]
     Active Substance: PREDNISONE
     Dosage: 3 TABS WITH FOOD (60MG) MORNING
     Route: 065

REACTIONS (3)
  - Off label use [Fatal]
  - Death [Fatal]
  - Intentional product use issue [Fatal]
